FAERS Safety Report 25891542 (Version 1)
Quarter: 2025Q4

REPORT INFORMATION
  Report Type: Spontaneous
  Country: EU (occurrence: EU)
  Receive Date: 20251007
  Receipt Date: 20251007
  Transmission Date: 20260118
  Serious: No
  Sender: IPSEN BIOPHARMACEUTICALS, INC.
  Company Number: EU-IPSEN Group, Research and Development-2025-22041

PATIENT
  Age: 58 Year
  Sex: Female

DRUGS (1)
  1. BOTULINUM TOXIN TYPE A [Suspect]
     Active Substance: BOTULINUM TOXIN TYPE A
     Indication: Skin cosmetic procedure
     Dosage: DOSAGE /FORM /STRENGTH: 100/30 UNITS

REACTIONS (3)
  - Drug ineffective [Unknown]
  - Headache [Unknown]
  - Injection site pain [Unknown]
